FAERS Safety Report 14511477 (Version 1)
Quarter: 2018Q1

REPORT INFORMATION
  Report Type: Spontaneous
  Country: FR (occurrence: FR)
  Receive Date: 20180209
  Receipt Date: 20180209
  Transmission Date: 20180509
  Serious: Yes (Other)
  Sender: FDA-Public Use
  Company Number: FR-BAYER-2018-022337

PATIENT
  Age: 33 Year
  Sex: Female

DRUGS (2)
  1. MIRENA [Suspect]
     Active Substance: LEVONORGESTREL
     Indication: CONTRACEPTION
  2. MIRENA [Suspect]
     Active Substance: LEVONORGESTREL
     Indication: CONTRACEPTION
     Dosage: 20 MCG/24HR, CONT
     Route: 015
     Dates: start: 20040801

REACTIONS (11)
  - Weight increased [Unknown]
  - Nervousness [Unknown]
  - Headache [Unknown]
  - Fatigue [Unknown]
  - Vertigo [Unknown]
  - Back pain [Unknown]
  - Depression [Unknown]
  - Insomnia [Unknown]
  - Urinary tract infection [Unknown]
  - Nausea [Unknown]
  - Ovarian cyst [Unknown]

NARRATIVE: CASE EVENT DATE: 20040901
